FAERS Safety Report 7610324-2 (Version None)
Quarter: 2011Q3

REPORT INFORMATION
  Report Type: 
  Country: None (occurrence: None)
  Receive Date: 20110715
  Receipt Date: 20110701
  Transmission Date: 20111222
  Serious: Yes (Other)
  Sender: FDA-Public Use
  Company Number: US-JNJFOC-20110704956

PATIENT
  Age: 52 Year
  Sex: Female
  Weight: 131.54 kg

DRUGS (2)
  1. ACETAMINOPHEN [Suspect]
     Indication: ANALGESIC THERAPY
     Dosage: 2 TABLETS, 8 HOURS
     Route: 065
     Dates: start: 20110623, end: 20110623
  2. ACETAMINOPHEN [Suspect]
     Route: 065

REACTIONS (5)
  - PRODUCT QUALITY ISSUE [None]
  - DIARRHOEA [None]
  - VOMITING [None]
  - NAUSEA [None]
  - ABDOMINAL PAIN [None]
